FAERS Safety Report 6749683-1 (Version None)
Quarter: 2010Q2

REPORT INFORMATION
  Report Type: 
  Country: None (occurrence: None)
  Receive Date: 20100601
  Receipt Date: 20100527
  Transmission Date: 20101027
  Serious: Yes (Other)
  Sender: FDA-Public Use
  Company Number: D0067754A

PATIENT
  Age: 34 Year
  Sex: Female
  Weight: 59 kg

DRUGS (1)
  1. ARIXTRA [Suspect]
     Indication: THROMBOSIS PROPHYLAXIS
     Dosage: 2.5MG PER DAY
     Route: 065
     Dates: start: 20091124

REACTIONS (2)
  - DRUG EXPOSURE DURING PREGNANCY [None]
  - VAGINAL HAEMORRHAGE [None]
